FAERS Safety Report 13040915 (Version 2)
Quarter: 2017Q1

REPORT INFORMATION
  Report Type: Spontaneous
  Country: US (occurrence: US)
  Receive Date: 20161219
  Receipt Date: 20170110
  Transmission Date: 20170428
  Serious: No
  Sender: FDA-Public Use
  Company Number: US-PFIZER INC-2016579745

PATIENT
  Age: 40 Year
  Sex: Female

DRUGS (6)
  1. GABAPENTIN. [Concomitant]
     Active Substance: GABAPENTIN
     Indication: BIPOLAR DISORDER
     Dosage: UNK
     Dates: start: 20160219
  2. PROZAC [Suspect]
     Active Substance: FLUOXETINE HYDROCHLORIDE
     Dosage: UNK
  3. EFFEXOR [Suspect]
     Active Substance: VENLAFAXINE HYDROCHLORIDE
     Dosage: UNK
  4. CYMBALTA [Suspect]
     Active Substance: DULOXETINE HYDROCHLORIDE
     Dosage: UNK
  5. ABILIFY MAINTENA [Concomitant]
     Active Substance: ARIPIPRAZOLE
     Indication: BIPOLAR DISORDER
     Dosage: UNK
     Dates: start: 20160219
  6. LAMICTAL [Concomitant]
     Active Substance: LAMOTRIGINE
     Indication: BIPOLAR DISORDER
     Dosage: UNK
     Dates: start: 20151111

REACTIONS (1)
  - Drug hypersensitivity [Unknown]
